FAERS Safety Report 7065388-4 (Version None)
Quarter: 2010Q4

REPORT INFORMATION
  Report Type: 
  Country: None (occurrence: None)
  Receive Date: 20101019
  Receipt Date: 20101007
  Transmission Date: 20110411
  Serious: Yes (Death, Hospitalization)
  Sender: FDA-Public Use
  Company Number: 2010AC000532

PATIENT
  Age: 58 Year
  Sex: Male

DRUGS (14)
  1. DIGOXIN [Suspect]
     Dosage: 0.25 MG; QD; PO
     Route: 048
     Dates: start: 19990101, end: 20040601
  2. ASPIRIN [Concomitant]
  3. ACCUPRIL [Concomitant]
  4. TOPROL-XL [Concomitant]
  5. LIPITOR [Concomitant]
  6. COUMADIN [Concomitant]
  7. NITROGLYCERIN [Concomitant]
  8. PLAVIX [Concomitant]
  9. LOPRESSOR [Concomitant]
  10. HEPARIN [Concomitant]
  11. ATROVENT [Concomitant]
  12. AZMACORT [Concomitant]
  13. FLOVENT [Concomitant]
  14. VIOXX [Concomitant]

REACTIONS (25)
  - ARTERIOSCLEROSIS CORONARY ARTERY [None]
  - ARTHRALGIA [None]
  - BLOOD UREA INCREASED [None]
  - BURSITIS [None]
  - CARDIAC FAILURE CONGESTIVE [None]
  - CARDIO-RESPIRATORY ARREST [None]
  - CHEST DISCOMFORT [None]
  - CHRONIC OBSTRUCTIVE PULMONARY DISEASE [None]
  - CORONARY ARTERY DISEASE [None]
  - DILATATION VENTRICULAR [None]
  - DIZZINESS [None]
  - ECONOMIC PROBLEM [None]
  - EMOTIONAL DISORDER [None]
  - HYPERCHOLESTEROLAEMIA [None]
  - HYPERTENSION [None]
  - INJURY [None]
  - JOINT SWELLING [None]
  - LOSS OF EMPLOYMENT [None]
  - MASS [None]
  - MITRAL VALVE INCOMPETENCE [None]
  - MYOCARDIAL INFARCTION [None]
  - OEDEMA PERIPHERAL [None]
  - PAIN [None]
  - PAIN IN EXTREMITY [None]
  - SKIN DISCOLOURATION [None]
